FAERS Safety Report 22957230 (Version 2)
Quarter: 2023Q4

REPORT INFORMATION
  Report Type: Spontaneous
  Country: JP (occurrence: JP)
  Receive Date: 20230919
  Receipt Date: 20231207
  Transmission Date: 20240110
  Serious: Yes (Life-Threatening, Hospitalization, Other)
  Sender: FDA-Public Use
  Company Number: JP-BRISTOL-MYERS SQUIBB COMPANY-2023-131186

PATIENT
  Age: 87 Year
  Sex: Female

DRUGS (5)
  1. REVLIMID [Suspect]
     Active Substance: LENALIDOMIDE
     Indication: Plasma cell myeloma
     Route: 048
     Dates: start: 20230904, end: 20230904
  2. LENADEX [Suspect]
     Active Substance: DEXAMETHASONE ACETATE
     Indication: Plasma cell myeloma
     Dates: start: 20230904, end: 20230904
  3. LENADEX [Suspect]
     Active Substance: DEXAMETHASONE ACETATE
     Dates: start: 20230911
  4. VELCADE [Suspect]
     Active Substance: BORTEZOMIB
     Indication: Plasma cell myeloma
     Dates: start: 20230904, end: 20230904
  5. VELCADE [Suspect]
     Active Substance: BORTEZOMIB
     Dates: start: 20230911

REACTIONS (3)
  - Tumour lysis syndrome [Recovered/Resolved]
  - Altered state of consciousness [Recovered/Resolved]
  - Blood lactate dehydrogenase increased [Recovered/Resolved]

NARRATIVE: CASE EVENT DATE: 20230905
